FAERS Safety Report 8447926-X (Version None)
Quarter: 2012Q2

REPORT INFORMATION
  Report Type: 
  Country: None (occurrence: None)
  Receive Date: 20120619
  Receipt Date: 20120614
  Transmission Date: 20120825
  Serious: Yes (Other)
  Sender: FDA-Public Use
  Company Number: PHEH2012US009003

PATIENT
  Sex: Female

DRUGS (8)
  1. NORVASC [Concomitant]
     Dosage: 2.5 MG, UNK
  2. ALTACE [Concomitant]
     Dosage: 20 MG, UNK
  3. LASIX [Concomitant]
     Dosage: UNK UKN, UNK
  4. KOREC [Concomitant]
     Dosage: 25 MG, UNK
  5. HYDRALAZINE HYDROCHLORIDE [Concomitant]
     Dosage: 1 DF (25/50), UNK
  6. NEXIUM [Concomitant]
     Indication: GASTROOESOPHAGEAL REFLUX DISEASE
     Dosage: 3 DF, DAILY
  7. HYDROCHLOROTHIAZIDE [Concomitant]
     Dosage: 25 MG, UNK
  8. DIOVAN [Suspect]
     Indication: HYPERTENSION
     Dosage: 80 MG, TID (EVERY MORNING)
     Route: 048

REACTIONS (3)
  - CARDIAC FAILURE CONGESTIVE [None]
  - WRONG TECHNIQUE IN DRUG USAGE PROCESS [None]
  - BRAIN NEOPLASM [None]
